FAERS Safety Report 13290538 (Version 14)
Quarter: 2018Q2

REPORT INFORMATION
  Report Type: Spontaneous
  Country: CA (occurrence: CA)
  Receive Date: 20170302
  Receipt Date: 20180509
  Transmission Date: 20180711
  Serious: Yes (Other)
  Sender: FDA-Public Use
  Company Number: CA-PFIZER INC-2017087688

PATIENT
  Age: 63 Year
  Sex: Female

DRUGS (8)
  1. XELJANZ [Suspect]
     Active Substance: TOFACITINIB CITRATE
     Dosage: 5 MG, TWICE DAILY
     Route: 048
     Dates: start: 20170703
  2. CYMBALTA [Concomitant]
     Active Substance: DULOXETINE HYDROCHLORIDE
     Indication: DEPRESSION
     Dosage: UNK
  3. HYDROXYCHLOROQUINE [Concomitant]
     Active Substance: HYDROXYCHLOROQUINE
     Indication: RHEUMATOID ARTHRITIS
     Dosage: 200 MG, UNK
     Route: 048
     Dates: start: 2014
  4. OXYCODONE [Concomitant]
     Active Substance: OXYCODONE
     Dosage: 35 MG, ONCE A DAY
     Route: 048
  5. XELJANZ [Suspect]
     Active Substance: TOFACITINIB CITRATE
     Indication: RHEUMATOID ARTHRITIS
     Dosage: 5 MG, TWICE DAILY
     Route: 048
     Dates: start: 20141204, end: 20170227
  6. XELJANZ [Suspect]
     Active Substance: TOFACITINIB CITRATE
     Dosage: 5 MG, TWICE DAILY
     Route: 048
     Dates: start: 20170610
  7. OXYCODONE [Concomitant]
     Active Substance: OXYCODONE
     Dosage: 240 MG, ONCE A DAY
     Route: 048
  8. OXYCODONE [Concomitant]
     Active Substance: OXYCODONE
     Dosage: 40 MG, ONCE A DAY
     Route: 048

REACTIONS (10)
  - Drug effect incomplete [Unknown]
  - Lung infection [Unknown]
  - Rib fracture [Unknown]
  - Fall [Unknown]
  - Cystitis [Unknown]
  - Urinary tract infection [Unknown]
  - Fungal infection [Unknown]
  - Delirium [Not Recovered/Not Resolved]
  - Macular hole [Not Recovered/Not Resolved]
  - Pyrexia [Unknown]

NARRATIVE: CASE EVENT DATE: 20170226
